FAERS Safety Report 4390985-4 (Version None)
Quarter: 2004Q3

REPORT INFORMATION
  Report Type: 
  Country: None (occurrence: None)
  Receive Date: 20040701
  Receipt Date: 20040701
  Transmission Date: 20050211
  Serious: Yes (Other)
  Sender: FDA-Public Use
  Company Number: None

PATIENT
  Age: 10 Year
  Sex: 0
  Weight: 25.8 kg

DRUGS (1)
  1. DEFEROXAMINE MESYLATE 2 GM [Suspect]
     Indication: BLOOD IRON INCREASED
     Dosage: 560 MG SQ X 8 HRS 5 NIGHTS/WK
     Route: 058

REACTIONS (2)
  - PHARMACEUTICAL PRODUCT COMPLAINT [None]
  - SKIN IRRITATION [None]
